FAERS Safety Report 4349968-2 (Version None)
Quarter: 2004Q2

REPORT INFORMATION
  Report Type: 
  Country: None (occurrence: None)
  Receive Date: 20040428
  Receipt Date: 20040428
  Transmission Date: 20050107
  Serious: Yes (Hospitalization)
  Sender: FDA-Public Use
  Company Number: None

PATIENT
  Age: 86 Year
  Sex: Male
  Weight: 62.5964 kg

DRUGS (10)
  1. WARFARIN SODIUM [Suspect]
     Indication: ATRIAL FIBRILLATION
     Dosage: 7.5 MG DAILY
  2. COUMADIN [Concomitant]
  3. POTASSIUM CHLORIDE [Concomitant]
  4. B12 [Concomitant]
  5. DILTIAZEM [Concomitant]
  6. ALBUTEROL [Concomitant]
  7. MILK OF MAGNESIA TAB [Concomitant]
  8. DULCOLAX [Concomitant]
  9. DARVOCET [Concomitant]
  10. MORPHINE SULFATE [Concomitant]

REACTIONS (2)
  - MOUTH HAEMORRHAGE [None]
  - PHARYNGEAL HAEMORRHAGE [None]
